FAERS Safety Report 9520660 (Version 2)
Quarter: 2013Q3

REPORT INFORMATION
  Report Type: Report from Study
  Country: JP (occurrence: JP)
  Receive Date: 20130913
  Receipt Date: 20130913
  Transmission Date: 20140515
  Serious: Yes (Hospitalization)
  Sender: FDA-Public Use
  Company Number: JP-009507513-2009SP005033

PATIENT
  Age: 47 Year
  Sex: Female
  Weight: 64 kg

DRUGS (22)
  1. REBETOL [Suspect]
     Indication: CHRONIC HEPATITIS C
     Dosage: 800 MG, QD
     Route: 048
     Dates: start: 20090210, end: 20090220
  2. REBETOL [Suspect]
     Dosage: 600 MG, QD
     Route: 048
     Dates: start: 20090220, end: 20090227
  3. REBETOL [Suspect]
     Dosage: 400 MG, QD
     Route: 048
     Dates: start: 20090227, end: 20090306
  4. REBETOL [Suspect]
     Dosage: 200-600 MG/DOSE; DAILY DOSE, 600-1000 MG AFTER MEALS B.I.D.
     Route: 048
  5. PEGINTRON [Suspect]
     Indication: CHRONIC HEPATITIS C
     Dosage: 100 MICROGRAM, QW
     Route: 058
     Dates: start: 20090210, end: 20090303
  6. PEGINTRON [Suspect]
     Dosage: 1.5 UG/KG; RANGE, 1250-1739 UG/KG ONCE A WEEK
     Route: 058
  7. TELAPREVIR [Suspect]
     Indication: CHRONIC HEPATITIS C
     Dosage: 250 MG, TID
     Route: 048
     Dates: start: 20090210, end: 20090306
  8. TELAPREVIR [Suspect]
     Dosage: 750 MG, TID CADA 8 H AFTER MEALS
     Route: 048
  9. LOXONIN [Concomitant]
     Indication: PYREXIA
     Dosage: 60 MG, PRN
     Route: 048
     Dates: start: 20090211
  10. ALLELOCK [Concomitant]
     Indication: DRUG ERUPTION
     Dosage: 10 MG, BID
     Route: 048
     Dates: start: 20090212, end: 20090215
  11. ANTEBATE [Concomitant]
     Indication: DRUG ERUPTION
     Dosage: UNK UNK, PRN
     Route: 061
     Dates: start: 20090212, end: 20090215
  12. DIFLAL [Concomitant]
     Indication: DRUG ERUPTION
     Dosage: UNK UNK, PRN
     Route: 061
     Dates: start: 20090216, end: 20090222
  13. ANTEBATE [Concomitant]
     Indication: DRUG ERUPTION
     Dosage: UNK UNK, PRN
     Route: 061
     Dates: start: 20090223
  14. DIFLAL [Concomitant]
     Indication: DRUG ERUPTION
     Dosage: UNK UNK, PRN
     Route: 061
     Dates: start: 20090305, end: 20090306
  15. TALION (BEPOTASTINE BESYLATE) [Concomitant]
     Indication: DRUG ERUPTION
     Dosage: 10 MG, BID
     Route: 048
     Dates: start: 20090216, end: 20090303
  16. TALION (BEPOTASTINE BESYLATE) [Concomitant]
     Indication: DRUG ERUPTION
     Dosage: 10 MG, BID
     Route: 048
     Dates: start: 20090305, end: 20090306
  17. DICLOFENAC [Concomitant]
     Indication: PYREXIA
     Dosage: 25 MG, PRN
     Dates: start: 20090212, end: 20090304
  18. LIVOSTIN [Concomitant]
     Indication: SEASONAL ALLERGY
     Dosage: UNK UNK, PRN
     Dates: start: 20090223, end: 20090227
  19. PRIMPERAN [Concomitant]
     Indication: NAUSEA
     Dosage: 5 MG, PRN
     Route: 048
     Dates: start: 20090223, end: 20090310
  20. MERCAZOLE [Concomitant]
     Indication: BASEDOW^S DISEASE
     Dosage: 5 MG, QOD
     Route: 048
     Dates: start: 20070515
  21. LAC-B [Concomitant]
     Indication: DIARRHOEA
     Dosage: 3 G, QD
     Route: 048
     Dates: start: 20090223, end: 20090228
  22. NEGMIN [Concomitant]
     Indication: STOMATITIS
     Dates: start: 20090220, end: 20090402

REACTIONS (1)
  - Erythema multiforme [Recovered/Resolved]
